FAERS Safety Report 7931514-5 (Version None)
Quarter: 2011Q4

REPORT INFORMATION
  Report Type: 
  Country: None (occurrence: None)
  Receive Date: 20111121
  Receipt Date: 20111121
  Transmission Date: 20120403
  Serious: Yes (Life-Threatening, Other)
  Sender: FDA-Public Use
  Company Number: None

PATIENT
  Age: 1 Day
  Sex: Male
  Weight: 0.49 kg

DRUGS (1)
  1. INFASURF PRESERVATIVE FREE [Suspect]
     Indication: RESPIRATORY DISTRESS
     Dosage: 3 CC/KG
     Dates: start: 20111015, end: 20111015

REACTIONS (2)
  - MALAISE [None]
  - OBSTRUCTIVE AIRWAYS DISORDER [None]
